FAERS Safety Report 5529606-3 (Version None)
Quarter: 2007Q4

REPORT INFORMATION
  Report Type: 
  Country: None (occurrence: None)
  Receive Date: 20071129
  Receipt Date: 20071121
  Transmission Date: 20080405
  Serious: Yes (Hospitalization, Other)
  Sender: FDA-Public Use
  Company Number: US-WYE-H00646607

PATIENT
  Age: 50 Year
  Sex: Female

DRUGS (2)
  1. TYGACIL [Suspect]
     Indication: WOUND INFECTION
     Route: 042
     Dates: start: 20070901
  2. MEGACE [Concomitant]
     Indication: ENDOMETRIAL HYPERPLASIA

REACTIONS (1)
  - PULMONARY EMBOLISM [None]
